FAERS Safety Report 8134975-4 (Version None)
Quarter: 2012Q1

REPORT INFORMATION
  Report Type: 
  Country: None (occurrence: None)
  Receive Date: 20120214
  Receipt Date: 20120208
  Transmission Date: 20120608
  Serious: Yes (Other)
  Sender: FDA-Public Use
  Company Number: US-BAYER-2012-013443

PATIENT
  Sex: Female

DRUGS (1)
  1. MIRENA [Suspect]
     Indication: CONTRACEPTION
     Dosage: DAILY DOSE 20 ?G
     Route: 015
     Dates: start: 20080101, end: 20090201

REACTIONS (4)
  - VAGINAL HAEMORRHAGE [None]
  - HYPERTRICHOSIS [None]
  - ACNE [None]
  - OVARIAN CYST [None]
